FAERS Safety Report 14861587 (Version 1)
Quarter: 2018Q2

REPORT INFORMATION
  Report Type: Spontaneous
  Country: US (occurrence: US)
  Receive Date: 20180508
  Receipt Date: 20180508
  Transmission Date: 20180711
  Serious: No
  Sender: FDA-Public Use
  Company Number: US-PERRIGO-18US004029

PATIENT
  Age: 46 Year
  Sex: Female
  Weight: 58.96 kg

DRUGS (3)
  1. STEROIDS [Suspect]
     Active Substance: UNSPECIFIED INGREDIENT
     Indication: SKIN REACTION
     Dosage: UNKNOWN, BID
     Route: 061
     Dates: start: 201803, end: 20180409
  2. PERMETHRIN. [Suspect]
     Active Substance: PERMETHRIN
     Dosage: 1 APPLICATION, SINGLE
     Route: 061
     Dates: start: 20180411, end: 20180411
  3. PERMETHRIN. [Suspect]
     Active Substance: PERMETHRIN
     Indication: ACARODERMATITIS
     Dosage: 1 APPLICATION, SINGLE
     Route: 061
     Dates: start: 20180325, end: 20180325

REACTIONS (17)
  - Ocular hyperaemia [Unknown]
  - Application site dryness [Not Recovered/Not Resolved]
  - Application site exfoliation [Not Recovered/Not Resolved]
  - Application site erythema [Unknown]
  - Application site swelling [Not Recovered/Not Resolved]
  - Eye irritation [Unknown]
  - Application site scab [Not Recovered/Not Resolved]
  - Application site pruritus [Not Recovered/Not Resolved]
  - Chemical burn [Not Recovered/Not Resolved]
  - Skin tightness [Not Recovered/Not Resolved]
  - Neuralgia [Recovering/Resolving]
  - Periorbital oedema [Unknown]
  - Application site discolouration [Not Recovered/Not Resolved]
  - Wrong technique in product usage process [Recovered/Resolved]
  - Application site pain [Not Recovered/Not Resolved]
  - Application site inflammation [Not Recovered/Not Resolved]
  - Alopecia [Not Recovered/Not Resolved]

NARRATIVE: CASE EVENT DATE: 201803
